FAERS Safety Report 6050479-7 (Version None)
Quarter: 2009Q1

REPORT INFORMATION
  Report Type: 
  Country: None (occurrence: None)
  Receive Date: 20090126
  Receipt Date: 20090115
  Transmission Date: 20090719
  Serious: Yes (Other)
  Sender: FDA-Public Use
  Company Number: PHHY2009GB01725

PATIENT
  Sex: Male

DRUGS (1)
  1. BACLOFEN [Suspect]
     Dosage: UNK

REACTIONS (1)
  - HEPATIC FAILURE [None]
